FAERS Safety Report 5699292-0 (Version None)
Quarter: 2008Q2

REPORT INFORMATION
  Report Type: 
  Country: None (occurrence: None)
  Receive Date: 20080404
  Receipt Date: 20080326
  Transmission Date: 20081010
  Serious: Yes (Other)
  Sender: FDA-Public Use
  Company Number: DSU-2008-00447

PATIENT
  Sex: Female

DRUGS (3)
  1. WELCHOL [Suspect]
     Indication: HYPERLIPIDAEMIA
     Dosage: PER ORAL
     Route: 048
     Dates: start: 20080301, end: 20080301
  2. BENICAR [Suspect]
     Indication: HYPERTENSION
     Dosage: PER ORAL
     Route: 048
     Dates: start: 20080301, end: 20080301
  3. AVAPRO (IRBESARTAN) (TABLET) (IRBESARTAN) [Concomitant]

REACTIONS (4)
  - ANGIOEDEMA [None]
  - DYSPNOEA [None]
  - FLUSHING [None]
  - RASH [None]
